APPROVED DRUG PRODUCT: FLURANDRENOLIDE
Active Ingredient: FLURANDRENOLIDE
Strength: 0.05%
Dosage Form/Route: CREAM;TOPICAL
Application: A205342 | Product #001
Applicant: CHARTWELL RX SCIENCES LLC
Approved: Apr 13, 2016 | RLD: No | RS: No | Type: DISCN